FAERS Safety Report 12782269 (Version 1)
Quarter: 2016Q3

REPORT INFORMATION
  Report Type: Spontaneous
  Country: US (occurrence: US)
  Receive Date: 20160927
  Receipt Date: 20160927
  Transmission Date: 20161109
  Serious: No
  Sender: FDA-Public Use
  Company Number: US-BAYER-2016-186713

PATIENT
  Age: 84 Year
  Sex: Female

DRUGS (2)
  1. CHOLESTEROL [Concomitant]
     Active Substance: CHOLESTEROL
     Dosage: UNK
  2. CLARITIN-D 12 HOUR [Suspect]
     Active Substance: LORATADINE\PSEUDOEPHEDRINE SULFATE
     Dosage: 1 DF, ONCE
     Route: 048
     Dates: start: 20160924, end: 20160924

REACTIONS (1)
  - Insomnia [Unknown]

NARRATIVE: CASE EVENT DATE: 20160924
